FAERS Safety Report 6740785-2 (Version None)
Quarter: 2010Q2

REPORT INFORMATION
  Report Type: 
  Country: None (occurrence: None)
  Receive Date: 20100525
  Receipt Date: 20100525
  Transmission Date: 20101027
  Serious: Yes (Hospitalization)
  Sender: FDA-Public Use
  Company Number: None

PATIENT
  Sex: Male

DRUGS (18)
  1. ORAL CLOFARABINE, 1 MG, GENZYME CORP. [Suspect]
     Indication: MYELODYSPLASTIC SYNDROME
     Dosage: 1MG Q10D PO 1MG Q7D PO
     Route: 048
     Dates: start: 20090416, end: 20090425
  2. ORAL CLOFARABINE, 1 MG, GENZYME CORP. [Suspect]
     Indication: MYELODYSPLASTIC SYNDROME
     Dosage: 1MG Q10D PO 1MG Q7D PO
     Route: 048
     Dates: start: 20090514
  3. ARANESP [Concomitant]
  4. ZOSYN [Concomitant]
  5. NEXIUM [Concomitant]
  6. ENOXAPARIN SODIUM [Concomitant]
  7. TYLENOL [Concomitant]
  8. FENTANYL [Concomitant]
  9. ONDANSETRON [Concomitant]
  10. COMPAZINE [Concomitant]
  11. PEPCID [Concomitant]
  12. ASPIRIN [Concomitant]
  13. KEFLEX [Concomitant]
  14. VICODIN [Concomitant]
  15. SODIUM CHLORIDE [Concomitant]
  16. MORPHINE [Concomitant]
  17. PHENERGAN [Concomitant]
  18. ZOFRAN [Concomitant]

REACTIONS (18)
  - ATELECTASIS [None]
  - ATRIAL FIBRILLATION [None]
  - BACTERIAL INFECTION [None]
  - CARDIAC FAILURE CONGESTIVE [None]
  - CARDIOMEGALY [None]
  - CHOLECYSTITIS [None]
  - CHOLELITHIASIS [None]
  - FLUID OVERLOAD [None]
  - GALLBLADDER DISORDER [None]
  - HEART RATE IRREGULAR [None]
  - HYPERHIDROSIS [None]
  - LOBAR PNEUMONIA [None]
  - OEDEMA PERIPHERAL [None]
  - PERICARDITIS [None]
  - PLATELET COUNT DECREASED [None]
  - PLEURAL EFFUSION [None]
  - PULMONARY HYPERTENSION [None]
  - RENAL FAILURE [None]
